FAERS Safety Report 9350941 (Version 1)
Quarter: 2013Q2

REPORT INFORMATION
  Report Type: Spontaneous
  Country: US (occurrence: US)
  Receive Date: 20130617
  Receipt Date: 20130617
  Transmission Date: 20140414
  Serious: No
  Sender: FDA-Public Use
  Company Number: US-PFIZER INC-2013181132

PATIENT
  Age: 78 Year
  Sex: Female
  Weight: 79.37 kg

DRUGS (3)
  1. LYRICA [Suspect]
     Indication: NEUROPATHY PERIPHERAL
     Dosage: DAILY
     Dates: start: 201305, end: 201306
  2. PREDNISONE [Suspect]
     Indication: RASH
     Dosage: UNK
     Dates: start: 201306
  3. PREDNISONE [Suspect]
     Indication: PRURITUS

REACTIONS (2)
  - Drug ineffective [Unknown]
  - Rash [Not Recovered/Not Resolved]
